FAERS Safety Report 7648675-8 (Version None)
Quarter: 2011Q3

REPORT INFORMATION
  Report Type: 
  Country: None (occurrence: None)
  Receive Date: 20110801
  Receipt Date: 20110721
  Transmission Date: 20111222
  Serious: Yes (Hospitalization)
  Sender: FDA-Public Use
  Company Number: PHHY2011US66302

PATIENT
  Age: 94 Year
  Sex: Female

DRUGS (1)
  1. EXELON [Suspect]
     Dosage: UNK UKN, UNK
     Route: 062

REACTIONS (1)
  - DECUBITUS ULCER [None]
